FAERS Safety Report 5162831-2 (Version None)
Quarter: 2006Q4

REPORT INFORMATION
  Report Type: 
  Country: None (occurrence: None)
  Receive Date: 20061201
  Receipt Date: 20001214
  Transmission Date: 20070319
  Serious: Yes (Hospitalization)
  Sender: FDA-Public Use
  Company Number: FR-GLAXOSMITHKLINE-B0094578A

PATIENT
  Age: 1 Day
  Sex: Male
  Weight: 3.3 kg

DRUGS (12)
  1. RETROVIR [Suspect]
     Indication: ANTIVIRAL PROPHYLAXIS
     Route: 048
     Dates: start: 20000127
  2. RETROVIR [Suspect]
     Route: 048
  3. RETROVIR [Suspect]
     Route: 042
     Dates: start: 20000127, end: 20000127
  4. COMBIVIR [Suspect]
     Indication: HIV INFECTION
     Route: 048
  5. EPIVIR [Suspect]
     Indication: ANTIVIRAL PROPHYLAXIS
     Route: 048
  6. VIRAMUNE [Suspect]
     Indication: ANTIVIRAL PROPHYLAXIS
     Route: 048
     Dates: start: 20000129, end: 20000129
  7. SUSTIVA [Suspect]
     Indication: HIV INFECTION
     Route: 048
  8. VIRAMUNE [Suspect]
     Dosage: 1TAB PER DAY
     Route: 048
  9. IRON [Concomitant]
  10. VITAMINS [Concomitant]
  11. PEVARYL [Concomitant]
  12. GINKOR [Concomitant]

REACTIONS (13)
  - ANAEMIA MACROCYTIC [None]
  - ANAEMIA NEONATAL [None]
  - BLOOD CREATINE PHOSPHOKINASE INCREASED [None]
  - BLOOD KETONE BODY PRESENT [None]
  - BLOOD LACTIC ACID INCREASED [None]
  - CAESAREAN SECTION [None]
  - DRUG EXPOSURE DURING PREGNANCY [None]
  - HYPERLACTACIDAEMIA [None]
  - LACTATE PYRUVATE RATIO INCREASED [None]
  - METABOLIC DISORDER [None]
  - PLATELET COUNT INCREASED [None]
  - RETROGNATHIA [None]
  - STRABISMUS [None]
